FAERS Safety Report 11673919 (Version 1)
Quarter: 2015Q4

REPORT INFORMATION
  Report Type: Spontaneous
  Country: US (occurrence: US)
  Receive Date: 20151027
  Receipt Date: 20151027
  Transmission Date: 20160304
  Serious: No
  Sender: FDA-Public Use
  Company Number: US-ELI_LILLY_AND_COMPANY-US201007006937

PATIENT
  Sex: Female

DRUGS (1)
  1. FORTEO [Suspect]
     Active Substance: TERIPARATIDE
     Dosage: 20 UG, DAILY (1/D)
     Route: 065
     Dates: start: 20100602, end: 20100723

REACTIONS (12)
  - Abdominal discomfort [Unknown]
  - Fatigue [Not Recovered/Not Resolved]
  - Muscular weakness [Unknown]
  - Visual impairment [Unknown]
  - Dizziness [Unknown]
  - Photopsia [Unknown]
  - Back pain [Unknown]
  - Asthenia [Unknown]
  - Nausea [Unknown]
  - Dysphonia [Unknown]
  - Vertigo [Unknown]
  - Vision blurred [Unknown]
